FAERS Safety Report 8962698 (Version 1)
Quarter: 2012Q4

REPORT INFORMATION
  Report Type: 
  Country: GB (occurrence: None)
  Receive Date: 20121206
  Receipt Date: 20121206
  Transmission Date: 20130627
  Serious: Yes (Hospitalization)
  Sender: FDA-Public Use
  Company Number: 2012ST000152

PATIENT
  Sex: Male

DRUGS (1)
  1. OMEPRAZOLE (OMEPRAZOLE) [Suspect]
     Indication: GASTRITIS
     Route: 048

REACTIONS (6)
  - Lethargy [None]
  - Decreased appetite [None]
  - Muscle spasms [None]
  - Hypomagnesaemia [None]
  - Hypocalcaemia [None]
  - Hypoparathyroidism [None]
